FAERS Safety Report 24773191 (Version 2)
Quarter: 2024Q4

REPORT INFORMATION
  Report Type: Spontaneous
  Country: US (occurrence: US)
  Receive Date: 20241225
  Receipt Date: 20241227
  Transmission Date: 20250115
  Serious: No
  Sender: ROCHE
  Company Number: US-ROCHE-10000160239

PATIENT
  Age: 17 Year
  Sex: Male

DRUGS (1)
  1. XOLAIR [Suspect]
     Active Substance: OMALIZUMAB
     Indication: Idiopathic urticaria
     Dosage: STRENGTH: 300MG/2ML
     Route: 058
     Dates: start: 202408, end: 20241215

REACTIONS (6)
  - Inappropriate schedule of product administration [Unknown]
  - Needle issue [Unknown]
  - Device mechanical issue [Unknown]
  - Accidental exposure to product [Unknown]
  - No adverse event [Unknown]
  - Product complaint [Unknown]

NARRATIVE: CASE EVENT DATE: 20241215
